FAERS Safety Report 7103755-0 (Version None)
Quarter: 2010Q4

REPORT INFORMATION
  Report Type: 
  Country: None (occurrence: None)
  Receive Date: 20101115
  Receipt Date: 20101102
  Transmission Date: 20110411
  Serious: Yes (Other)
  Sender: FDA-Public Use
  Company Number: US-ROCHE-739172

PATIENT
  Sex: Male

DRUGS (4)
  1. AVASTIN [Suspect]
     Indication: COLORECTAL CANCER
     Dosage: LATEST DOSE ON 06 OCT 2010 AND 20 OCT 2010.
     Route: 042
     Dates: start: 20100801
  2. FLUOROURACIL [Suspect]
     Indication: COLORECTAL CANCER
     Route: 065
  3. FOLINIC ACID [Suspect]
     Indication: COLORECTAL CANCER
     Route: 065
  4. OXALIPLATIN [Suspect]
     Indication: COLORECTAL CANCER
     Route: 065

REACTIONS (1)
  - LESION EXCISION [None]
